FAERS Safety Report 8371289-1 (Version None)
Quarter: 2012Q2

REPORT INFORMATION
  Report Type: 
  Country: None (occurrence: None)
  Receive Date: 20120518
  Receipt Date: 20120514
  Transmission Date: 20120825
  Serious: Yes (Hospitalization, Other)
  Sender: FDA-Public Use
  Company Number: FR-AMGEN-FRASP2012026278

PATIENT
  Age: 14 Year
  Sex: Female

DRUGS (13)
  1. BECOZYME [Concomitant]
  2. RENVELA [Concomitant]
     Dosage: 2.4 G, UNK
  3. EMLA [Concomitant]
  4. CALCIUM CARBONATE [Concomitant]
  5. SODIUM BICARBONATE [Concomitant]
  6. SPASFON [Concomitant]
  7. CINACALCET HYDROCHLORIDE [Suspect]
     Dosage: 30 MG, QD
     Route: 048
     Dates: start: 20120305, end: 20120405
  8. FOLIC ACID [Concomitant]
     Dosage: 5 MG, UNK
  9. CINACALCET HYDROCHLORIDE [Suspect]
     Dosage: 30 MG, QD
     Dates: start: 20090701
  10. VITAMIN B-12 [Concomitant]
  11. VITAMIN D [Concomitant]
  12. ACETAMINOPHEN [Concomitant]
     Dosage: 500 MG, UNK
  13. CINACALCET HYDROCHLORIDE [Suspect]
     Indication: RENAL FAILURE
     Dosage: 30 MG, QD
     Route: 048
     Dates: start: 20120305, end: 20120312

REACTIONS (2)
  - INFLAMMATION [None]
  - LEUKOCYTOCLASTIC VASCULITIS [None]
